FAERS Safety Report 5888893-2 (Version None)
Quarter: 2008Q3

REPORT INFORMATION
  Report Type: 
  Country: None (occurrence: None)
  Receive Date: 20080919
  Receipt Date: 20080912
  Transmission Date: 20090109
  Serious: Yes (Other)
  Sender: FDA-Public Use
  Company Number: PHEH2008US08269

PATIENT
  Sex: Female

DRUGS (1)
  1. VIVELLE-DOT [Suspect]

REACTIONS (3)
  - ARTHRITIS [None]
  - CARDIAC MURMUR [None]
  - HYPERTENSION [None]
